FAERS Safety Report 15886283 (Version 1)
Quarter: 2019Q1

REPORT INFORMATION
  Report Type: Spontaneous
  Country: US (occurrence: US)
  Receive Date: 20190129
  Receipt Date: 20190129
  Transmission Date: 20190417
  Serious: No
  Sender: FDA-Public Use
  Company Number: US-US WORLDMEDS, LLC-USW201809-001339

PATIENT
  Sex: Female
  Weight: 73.94 kg

DRUGS (2)
  1. NADOLOL. [Suspect]
     Active Substance: NADOLOL
     Route: 048
     Dates: start: 201801, end: 20180902
  2. NADOLOL. [Suspect]
     Active Substance: NADOLOL
     Indication: PORTAL HYPERTENSION
     Dates: start: 2004

REACTIONS (2)
  - Product use in unapproved indication [Unknown]
  - Depression [Recovered/Resolved]
